FAERS Safety Report 5508647-6 (Version None)
Quarter: 2007Q4

REPORT INFORMATION
  Report Type: 
  Country: None (occurrence: None)
  Receive Date: 20071031
  Receipt Date: 20070725
  Transmission Date: 20080405
  Serious: No
  Sender: FDA-Public Use
  Company Number: 2007PV033194

PATIENT
  Age: 71 Year
  Sex: Female

DRUGS (3)
  1. SYMLIN [Suspect]
     Indication: TYPE 2 DIABETES MELLITUS
     Dosage: 120 MCG;SC : 15 MCG;SC
     Route: 058
     Dates: end: 20070725
  2. SYMLIN [Suspect]
     Indication: TYPE 2 DIABETES MELLITUS
     Dosage: 120 MCG;SC : 15 MCG;SC
     Route: 058
     Dates: start: 20070613
  3. LANTUS [Concomitant]

REACTIONS (1)
  - NAUSEA [None]
